FAERS Safety Report 4383553-1 (Version None)
Quarter: 2004Q2

REPORT INFORMATION
  Report Type: 
  Country: None (occurrence: None)
  Receive Date: 20040602
  Receipt Date: 20031001
  Transmission Date: 20050107
  Serious: Yes (Other)
  Sender: FDA-Public Use
  Company Number: US-JNJFOC-20040301349

PATIENT
  Sex: Male
  Weight: 147.419 kg

DRUGS (5)
  1. PROPULSID [Suspect]
     Indication: DYSPEPSIA
     Dosage: SEE IMAGE
     Dates: start: 19950101
  2. PROPULSID [Suspect]
     Indication: GASTROOESOPHAGEAL REFLUX DISEASE
     Dosage: SEE IMAGE
     Dates: start: 19950101
  3. LITHOBID [Concomitant]
  4. PROZAC [Concomitant]
  5. SERZONE [Concomitant]

REACTIONS (4)
  - AUTONOMIC NEUROPATHY [None]
  - ELECTROCARDIOGRAM QT CORRECTED INTERVAL PROLONGED [None]
  - HEART INJURY [None]
  - VAGUS NERVE DISORDER [None]
